FAERS Safety Report 6115936-3 (Version None)
Quarter: 2009Q1

REPORT INFORMATION
  Report Type: 
  Country: None (occurrence: None)
  Receive Date: 20090311
  Receipt Date: 20090224
  Transmission Date: 20090719
  Serious: Yes (Other)
  Sender: FDA-Public Use
  Company Number: 2009EU000160

PATIENT
  Age: 16 Year

DRUGS (6)
  1. PROGRAF [Suspect]
     Indication: RENAL TRANSPLANT
     Dosage: UNK, UNKNOWN/D, ORAL
     Route: 048
     Dates: start: 19960901
  2. TAMIFLU [Suspect]
     Indication: INFLUENZA
     Dosage: UNK, UNKNOWN/D, UNKNOWN
     Dates: start: 20090106
  3. CELLCEPT [Concomitant]
  4. BICARBONATE (SODIUM BICARBONATE) [Concomitant]
  5. IRBESARTAN [Concomitant]
  6. CALCIUM CARBONATE (OROCAL) [Concomitant]

REACTIONS (4)
  - DRUG INTERACTION [None]
  - INFECTION [None]
  - INFLUENZA [None]
  - RENAL IMPAIRMENT [None]
